FAERS Safety Report 25872796 (Version 1)
Quarter: 2025Q4

REPORT INFORMATION
  Report Type: Spontaneous
  Country: US (occurrence: US)
  Receive Date: 20251002
  Receipt Date: 20251002
  Transmission Date: 20260117
  Serious: No
  Sender: REVANCE THERAPEUTICS
  Company Number: US-REVANCE THERAPEUTICS INC.-US-REV-2025-000433

PATIENT

DRUGS (4)
  1. DAXIBOTULINUMTOXIN A-LANM [Suspect]
     Active Substance: DAXIBOTULINUMTOXIN A-LANM
     Indication: Skin wrinkling
     Dosage: 20 UNITS IN GLABELLA,10 UNITS IN FRONTALIS
     Route: 065
     Dates: start: 20250710
  2. GLUCAGON-LIKE PEPTIDE-1 (GLP-1) ANALOGUES [Concomitant]
     Indication: Weight decreased
     Dosage: UNK
     Route: 065
     Dates: start: 20250710
  3. LEVOTHYROXINE [Concomitant]
     Active Substance: LEVOTHYROXINE
     Indication: Product used for unknown indication
     Route: 065
  4. CELLCEPT [Concomitant]
     Active Substance: MYCOPHENOLATE MOFETIL
     Indication: Product used for unknown indication
     Dosage: UNK
     Route: 065

REACTIONS (5)
  - Tremor [Unknown]
  - Hypotension [Unknown]
  - Feeling abnormal [Unknown]
  - Underdose [Unknown]
  - Off label use [Unknown]

NARRATIVE: CASE EVENT DATE: 20250710
